FAERS Safety Report 5793942-6 (Version None)
Quarter: 2008Q2

REPORT INFORMATION
  Report Type: 
  Country: None (occurrence: None)
  Receive Date: 20080627
  Receipt Date: 20080619
  Transmission Date: 20081010
  Serious: Yes (Other)
  Sender: FDA-Public Use
  Company Number: US-PFIZER INC-2008029159

PATIENT
  Sex: Female

DRUGS (1)
  1. CADUET [Suspect]

REACTIONS (5)
  - BLOOD POTASSIUM DECREASED [None]
  - CARDIAC DISORDER [None]
  - HEART RATE INCREASED [None]
  - HEART RATE IRREGULAR [None]
  - TACHYCARDIA [None]
